FAERS Safety Report 10179246 (Version 2)
Quarter: 2014Q4

REPORT INFORMATION
  Report Type: Spontaneous
  Country: US (occurrence: US)
  Receive Date: 20140519
  Receipt Date: 20141016
  Transmission Date: 20150528
  Serious: Yes (Death, Other)
  Sender: FDA-Public Use
  Company Number: US-009507513-1405USA008518

PATIENT
  Sex: Male
  Weight: 117.91 kg

DRUGS (1)
  1. JANUMET [Suspect]
     Active Substance: METFORMIN HYDROCHLORIDE\SITAGLIPTIN PHOSPHATE
     Indication: TYPE 2 DIABETES MELLITUS
     Dosage: 1000 MG, QD
     Route: 048
     Dates: start: 2010, end: 2013

REACTIONS (5)
  - Organ failure [Unknown]
  - Pancreatic carcinoma [Unknown]
  - Blood glucose decreased [Unknown]
  - Death [Fatal]
  - Septic shock [Unknown]

NARRATIVE: CASE EVENT DATE: 20130411
